FAERS Safety Report 19312006 (Version 1)
Quarter: 2021Q2

REPORT INFORMATION
  Report Type: Report from Study
  Country: US (occurrence: US)
  Receive Date: 20210527
  Receipt Date: 20210527
  Transmission Date: 20210717
  Serious: Yes (Other)
  Sender: FDA-Public Use
  Company Number: US-TAIHO ONCOLOGY  INC-EU-2021-01586

PATIENT
  Sex: Female
  Weight: 43.13 kg

DRUGS (1)
  1. LONSURF [Suspect]
     Active Substance: TIPIRACIL HYDROCHLORIDE\TRIFLURIDINE
     Indication: BREAST CANCER
     Dosage: CYCLE UNKNOWN
     Route: 048

REACTIONS (2)
  - Off label use [Unknown]
  - Retinal tear [Unknown]
